FAERS Safety Report 21899180 (Version 2)
Quarter: 2024Q4

REPORT INFORMATION
  Report Type: Spontaneous
  Country: TW (occurrence: TW)
  Receive Date: 20230123
  Receipt Date: 20241224
  Transmission Date: 20250114
  Serious: Yes (Death)
  Sender: DECIPHERA PHARMACEUTICALS
  Company Number: TW-ZAILAB-ZAI202300010

PATIENT
  Age: 55 Year
  Sex: Male

DRUGS (2)
  1. QINLOCK [Suspect]
     Active Substance: RIPRETINIB
     Indication: Gastrointestinal stromal tumour
     Dosage: 150 MILLIGRAM, QD
     Dates: start: 20221117
  2. QINLOCK [Suspect]
     Active Substance: RIPRETINIB
     Indication: Gastrointestinal stromal tumour

REACTIONS (1)
  - Neoplasm progression [Fatal]
